FAERS Safety Report 4871030-0 (Version None)
Quarter: 2005Q4

REPORT INFORMATION
  Report Type: 
  Country: None (occurrence: None)
  Receive Date: 20051229
  Receipt Date: 20051027
  Transmission Date: 20060501
  Serious: Yes (Hospitalization, Other)
  Sender: FDA-Public Use
  Company Number: 2005_000059

PATIENT
  Age: 10 Year
  Sex: Male

DRUGS (7)
  1. DEPOCYT [Suspect]
     Indication: ACUTE LYMPHOCYTIC LEUKAEMIA
     Dosage: 35 MG; QOW; INTH
     Route: 037
     Dates: start: 20050811, end: 20050825
  2. VINCRISTINE [Concomitant]
  3. DEXAMETHASONE TAB [Concomitant]
  4. METHOTREXATE [Concomitant]
  5. CYTARABINE [Concomitant]
  6. HYDROCORTISONE [Concomitant]
  7. METHOTREXATE [Concomitant]

REACTIONS (7)
  - ARACHNOIDITIS [None]
  - BACK PAIN [None]
  - HEADACHE [None]
  - INJECTION SITE OEDEMA [None]
  - NAUSEA [None]
  - PROCEDURAL COMPLICATION [None]
  - VOMITING [None]
